FAERS Safety Report 4635922-X (Version None)
Quarter: 2005Q2

REPORT INFORMATION
  Report Type: 
  Country: None (occurrence: None)
  Receive Date: 20050413
  Receipt Date: 50050401
  Transmission Date: 20051028
  Serious: Yes (Hospitalization)
  Sender: FDA-Public Use
  Company Number: S05-USA-00167-01

PATIENT
  Age: 39 Year
  Sex: Female

DRUGS (2)
  1. LEXAPRO [Suspect]
     Indication: DEPRESSION
     Dosage: 20 MG QD PO
     Route: 048
     Dates: start: 20040101, end: 20041101
  2. LEXAPRO [Suspect]
     Indication: DEPRESSION
     Dosage: 10 MG QD PO
     Route: 048
     Dates: start: 20040901, end: 20040101

REACTIONS (7)
  - DYSPHAGIA [None]
  - EATING DISORDER [None]
  - MYOPATHY [None]
  - OESOPHAGEAL DISORDER [None]
  - PARALYSIS [None]
  - SPEECH DISORDER [None]
  - WEIGHT DECREASED [None]
